FAERS Safety Report 17840466 (Version 1)
Quarter: 2020Q2

REPORT INFORMATION
  Report Type: Spontaneous
  Country: GB (occurrence: GB)
  Receive Date: 20200529
  Receipt Date: 20200529
  Transmission Date: 20200714
  Serious: Yes (Death, Life-Threatening, Hospitalization, Disabling)
  Sender: FDA-Public Use
  Company Number: GB-ACCORD-183503

PATIENT
  Age: 91 Year
  Sex: Male

DRUGS (6)
  1. CLOPIDOGREL [Suspect]
     Active Substance: CLOPIDOGREL BISULFATE
     Indication: PRODUCT USED FOR UNKNOWN INDICATION
  2. LANSOPRAZOLE. [Concomitant]
     Active Substance: LANSOPRAZOLE
     Dosage: MORNING
  3. RANITIDINE. [Concomitant]
     Active Substance: RANITIDINE
     Dosage: 75MG/5ML
  4. DOCUSATE/DOCUSATE CALCIUM/DOCUSATE POTASSIUM/DOCUSATE SODIUM [Concomitant]
     Active Substance: DOCUSATE
     Dosage: 50MG/5ML, 5 TO 20ML AT NIGHT (AIMING FOR A DAILY MOTION)
  5. GAVISCON ADVANCE [Concomitant]
     Active Substance: POTASSIUM BICARBONATE\SODIUM ALGINATE
     Dosage: 1 OR 2 5ML SPOONFULS TO BE TAKEN THREE TIMES A DAY AFTER FOOD AND AT NIGHT.
  6. MACROGOL 3350 [Concomitant]
     Active Substance: POLYETHYLENE GLYCOL 3350

REACTIONS (5)
  - Upper gastrointestinal haemorrhage [Fatal]
  - Hyponatraemia [Unknown]
  - Blood potassium decreased [Unknown]
  - Haematemesis [Unknown]
  - Femoral neck fracture [Unknown]
